FAERS Safety Report 9702346 (Version 1)
Quarter: 2013Q4

REPORT INFORMATION
  Report Type: Spontaneous
  Country: US (occurrence: None)
  Receive Date: 20131119
  Receipt Date: 20131119
  Transmission Date: 20140711
  Serious: Yes (Life-Threatening)
  Sender: FDA-Public Use
  Company Number: 2013P1020940

PATIENT
  Age: 58 Year
  Sex: Female

DRUGS (3)
  1. DILTIAZEM [Suspect]
  2. METFORMIN [Concomitant]
  3. CITALOPRAM [Concomitant]

REACTIONS (5)
  - Pulmonary oedema [None]
  - Generalised oedema [None]
  - Respiratory failure [None]
  - Toxicity to various agents [None]
  - Atrioventricular block first degree [None]
